FAERS Safety Report 10544164 (Version 2)
Quarter: 2014Q4

REPORT INFORMATION
  Report Type: Spontaneous
  Country: US (occurrence: US)
  Receive Date: 20141027
  Receipt Date: 20141027
  Transmission Date: 20150529
  Serious: Yes (Hospitalization)
  Sender: FDA-Public Use
  Company Number: US-BEH-2013035499

PATIENT
  Age: 51 Year
  Sex: Female
  Weight: 69 kg

DRUGS (3)
  1. HIZENTRA [Suspect]
     Active Substance: HUMAN IMMUNOGLOBULIN G
  2. ORAL CONTRACEPTIVES [Suspect]
     Active Substance: UNSPECIFIED INGREDIENT
  3. OTHER HORMONES [Suspect]
     Active Substance: UNSPECIFIED INGREDIENT
     Route: 058

REACTIONS (2)
  - Pulmonary embolism [Unknown]
  - Thrombosis [Unknown]

NARRATIVE: CASE EVENT DATE: 20130325
